FAERS Safety Report 6920998-7 (Version None)
Quarter: 2010Q3

REPORT INFORMATION
  Report Type: 
  Country: None (occurrence: None)
  Receive Date: 20100812
  Receipt Date: 20100804
  Transmission Date: 20110219
  Serious: Yes (Hospitalization)
  Sender: FDA-Public Use
  Company Number: US-ROCHE-687671

PATIENT
  Sex: Female
  Weight: 79.8 kg

DRUGS (4)
  1. BONIVA [Suspect]
     Indication: OSTEOPOROSIS
     Dosage: FORM: PILL
     Route: 048
     Dates: start: 20090920, end: 20090920
  2. SPIRIVA [Concomitant]
     Dosage: OPNE CAPSULE BY ORAL INHALATION
     Route: 048
     Dates: end: 20090918
  3. WELCHOL [Concomitant]
     Dosage: FORM: PILL, RECEIVED WITH MEALS
     Route: 048
  4. ASPIRIN [Concomitant]
     Dosage: TAKEN WITH FOOD, ENTERIC COATED
     Route: 048

REACTIONS (10)
  - ABDOMINAL PAIN [None]
  - BACK PAIN [None]
  - BLOOD PRESSURE INCREASED [None]
  - ILL-DEFINED DISORDER [None]
  - MUSCLE CONTRACTURE [None]
  - MUSCLE SPASMS [None]
  - PAIN [None]
  - POST-TRAUMATIC PAIN [None]
  - RASH [None]
  - RESPIRATORY DISORDER [None]
